FAERS Safety Report 14860940 (Version 1)
Quarter: 2018Q2

REPORT INFORMATION
  Report Type: Spontaneous
  Country: CN (occurrence: CN)
  Receive Date: 20180508
  Receipt Date: 20180508
  Transmission Date: 20180711
  Serious: Yes (Other)
  Sender: FDA-Public Use
  Company Number: CN-ARALEZ PHARMACEUTICALS R+D INC.-2018-ARA-001105

PATIENT
  Age: 73 Year
  Sex: Male

DRUGS (2)
  1. AMIODARONE HYDROCHLORIDE. [Suspect]
     Active Substance: AMIODARONE HYDROCHLORIDE
     Indication: ATRIAL FIBRILLATION
     Dosage: 0.1 G, QD
     Route: 048
     Dates: start: 20180226, end: 20180306
  2. METOPROLOL SUCCINATE. [Suspect]
     Active Substance: METOPROLOL SUCCINATE
     Indication: ATRIAL FIBRILLATION
     Dosage: 23.75 MG, QD
     Route: 048
     Dates: start: 20180226, end: 20180306

REACTIONS (1)
  - Hypothyroidism [Unknown]

NARRATIVE: CASE EVENT DATE: 20180227
